FAERS Safety Report 7415720-4 (Version None)
Quarter: 2011Q2

REPORT INFORMATION
  Report Type: 
  Country: None (occurrence: None)
  Receive Date: 20110414
  Receipt Date: 20100310
  Transmission Date: 20111010
  Serious: No
  Sender: FDA-Public Use
  Company Number: US-BRISTOL-MYERS SQUIBB COMPANY-14965040

PATIENT
  Age: 87 Year
  Sex: Female

DRUGS (1)
  1. HYDREA [Suspect]
     Indication: THROMBOCYTOSIS
     Dosage: 1DF=1000MG+500MG .EVERY OTHER DAY PETIENT TAKES 1000MG.
     Route: 048
     Dates: start: 19930101

REACTIONS (3)
  - OROPHARYNGEAL BLISTERING [None]
  - SINUS CONGESTION [None]
  - INFLUENZA LIKE ILLNESS [None]
